FAERS Safety Report 5240571-9 (Version None)
Quarter: 2007Q1

REPORT INFORMATION
  Report Type: 
  Country: None (occurrence: None)
  Receive Date: 20061208
  Receipt Date: 20051114
  Transmission Date: 20070707
  Serious: Yes (Other)
  Sender: FDA-Public Use
  Company Number: 2005UW17277

PATIENT
  Age: 76 Year
  Sex: Female
  Weight: 63.502 kg

DRUGS (3)
  1. CRESTOR [Suspect]
     Dosage: 10 MG PO
     Route: 048
     Dates: start: 20051001
  2. NORVASC [Concomitant]
  3. ZIAC [Concomitant]

REACTIONS (2)
  - DYSURIA [None]
  - URINE ODOUR ABNORMAL [None]
